FAERS Safety Report 12611350 (Version 1)
Quarter: 2016Q3

REPORT INFORMATION
  Report Type: Spontaneous
  Country: US (occurrence: US)
  Receive Date: 20160801
  Receipt Date: 20160801
  Transmission Date: 20161109
  Serious: Yes (Other)
  Sender: FDA-Public Use
  Company Number: US-BAUSCH-BL-2016-017920

PATIENT
  Age: 61 Year
  Sex: Female

DRUGS (4)
  1. RIBAVIRIN. [Suspect]
     Active Substance: RIBAVIRIN
     Indication: HEPATITIS C
     Route: 065
     Dates: start: 201405, end: 20141007
  2. OLYSIO [Interacting]
     Active Substance: SIMEPREVIR
     Indication: HEPATITIS C
     Route: 065
     Dates: start: 201405, end: 20141007
  3. XIFAXAN [Suspect]
     Active Substance: RIFAXIMIN
     Indication: HEPATIC ENCEPHALOPATHY
     Route: 048
     Dates: start: 2014, end: 201512
  4. SOVALDI [Suspect]
     Active Substance: SOFOSBUVIR
     Indication: HEPATITIS C
     Route: 065
     Dates: start: 201405, end: 20141007

REACTIONS (16)
  - Cardiac disorder [Unknown]
  - Stress [Unknown]
  - Injury [Unknown]
  - Drug interaction [Unknown]
  - Chest pain [Unknown]
  - Immunosuppression [Unknown]
  - Pyrexia [Unknown]
  - Loss of consciousness [Unknown]
  - Arrhythmia [Unknown]
  - Guillain-Barre syndrome [Unknown]
  - Skin infection [Unknown]
  - Herpes zoster [Unknown]
  - Bone abscess [Unknown]
  - Malaise [Unknown]
  - Memory impairment [Unknown]
  - Infection [Unknown]

NARRATIVE: CASE EVENT DATE: 20151201
